FAERS Safety Report 23797110 (Version 1)
Quarter: 2024Q2

REPORT INFORMATION
  Report Type: Spontaneous
  Country: FR (occurrence: FR)
  Receive Date: 20240430
  Receipt Date: 20240430
  Transmission Date: 20240716
  Serious: Yes (Hospitalization, Other)
  Sender: FDA-Public Use
  Company Number: FR-CELLTRION INC.-2024FR009681

PATIENT

DRUGS (3)
  1. RITUXIMAB [Suspect]
     Active Substance: RITUXIMAB
     Indication: Purpura
     Dosage: 375 MG/M2, EVERY 4 DAYS
     Route: 042
     Dates: start: 20210706, end: 20210719
  2. COMIRNATY (TOZINAMERAN) [Suspect]
     Active Substance: TOZINAMERAN
     Indication: COVID-19 immunisation
     Dosage: 1 DF, 1 TOTAL
     Route: 030
     Dates: start: 20210719, end: 20210719
  3. PLAQUENIL [Suspect]
     Active Substance: HYDROXYCHLOROQUINE SULFATE
     Indication: Purpura
     Dosage: 2 DF, QD
     Route: 048
     Dates: start: 202106

REACTIONS (2)
  - Thrombocytopenic purpura [Recovering/Resolving]
  - Intentional product use issue [Unknown]

NARRATIVE: CASE EVENT DATE: 20210719
